FAERS Safety Report 8908288 (Version 2)
Quarter: 2013Q3

REPORT INFORMATION
  Report Type: Spontaneous
  Country: US (occurrence: US)
  Receive Date: 20121114
  Receipt Date: 20130819
  Transmission Date: 20140515
  Serious: Yes (Other)
  Sender: FDA-Public Use
  Company Number: CHPA2012US023239

PATIENT
  Age: 76 Year
  Sex: Female

DRUGS (5)
  1. EXCEDRIN MIGRAINE [Suspect]
     Indication: ARTHRITIS
     Dosage: 2 DF, QD
     Route: 048
     Dates: start: 1992
  2. EXCEDRIN MIGRAINE [Suspect]
     Indication: PAIN IN EXTREMITY
  3. CYMBALTA [Concomitant]
     Indication: ARTHRITIS
     Dosage: 30 MG, QD
     Dates: start: 2010
  4. CELEBREX [Concomitant]
     Indication: ARTHRITIS
     Dosage: 200 MG, PRN
     Dates: start: 2010
  5. EXCEDRIN EXTRA STRENGTH [Concomitant]
     Dosage: UNK

REACTIONS (5)
  - Femur fracture [Recovered/Resolved]
  - Abasia [Recovered/Resolved]
  - Pain in extremity [Not Recovered/Not Resolved]
  - Therapeutic response unexpected [Unknown]
  - Off label use [Unknown]
